FAERS Safety Report 4958718-8 (Version None)
Quarter: 2006Q1

REPORT INFORMATION
  Report Type: 
  Country: None (occurrence: None)
  Receive Date: 20060330
  Receipt Date: 20051129
  Transmission Date: 20060701
  Serious: Yes (Hospitalization, Disabling)
  Sender: FDA-Public Use
  Company Number: US-MERCK-0511USA04482

PATIENT
  Age: 51 Year
  Sex: Female
  Weight: 103 kg

DRUGS (3)
  1. VIOXX [Suspect]
     Indication: ARTHRITIS
     Route: 048
     Dates: start: 20020401, end: 20040401
  2. VIOXX [Suspect]
     Indication: PAIN
     Route: 048
     Dates: start: 20020401, end: 20040401
  3. PROTONIX [Concomitant]
     Route: 065

REACTIONS (2)
  - CEREBROVASCULAR ACCIDENT [None]
  - NEPHROLITHIASIS [None]
